FAERS Safety Report 7813730-6 (Version None)
Quarter: 2011Q4

REPORT INFORMATION
  Report Type: 
  Country: None (occurrence: None)
  Receive Date: 20111014
  Receipt Date: 20110930
  Transmission Date: 20120403
  Serious: Yes (Hospitalization)
  Sender: FDA-Public Use
  Company Number: US-BAYER-2011-025515

PATIENT
  Age: 24 Year
  Sex: Female
  Weight: 70 kg

DRUGS (2)
  1. YAZ [Suspect]
     Indication: CONTRACEPTION
     Dosage: UNK
     Dates: start: 20080101, end: 20090301
  2. ANTIBIOTICS [Concomitant]
     Indication: PNEUMONIA

REACTIONS (9)
  - INJURY [None]
  - DYSPNOEA [None]
  - DEEP VEIN THROMBOSIS [None]
  - NIGHT SWEATS [None]
  - WEIGHT DECREASED [None]
  - EMOTIONAL DISTRESS [None]
  - PULMONARY EMBOLISM [None]
  - PAIN [None]
  - COUGH [None]
